FAERS Safety Report 9768985 (Version 2)
Quarter: 2014Q1

REPORT INFORMATION
  Report Type: Spontaneous
  Country: DE (occurrence: DE)
  Receive Date: 20131218
  Receipt Date: 20140205
  Transmission Date: 20141002
  Serious: Yes (Hospitalization)
  Sender: FDA-Public Use
  Company Number: DE-ROCHE-1317448

PATIENT
  Age: 50 Year
  Sex: Male

DRUGS (2)
  1. AVASTIN [Suspect]
     Indication: LUNG NEOPLASM MALIGNANT
     Route: 065
     Dates: start: 201307, end: 20131025
  2. PEMETREXED [Concomitant]
     Indication: LUNG NEOPLASM MALIGNANT
     Route: 065
     Dates: start: 201307, end: 20131025

REACTIONS (2)
  - Disease progression [Unknown]
  - Malignant neoplasm progression [Unknown]
